FAERS Safety Report 14525202 (Version 1)
Quarter: 2018Q1

REPORT INFORMATION
  Report Type: Spontaneous
  Country: CA (occurrence: CA)
  Receive Date: 20180213
  Receipt Date: 20180213
  Transmission Date: 20180509
  Serious: Yes (Other)
  Sender: FDA-Public Use
  Company Number: CA-TEVA-2018-CA-857215

PATIENT
  Sex: Female

DRUGS (3)
  1. CARBAMAZEPINE. [Interacting]
     Active Substance: CARBAMAZEPINE
     Indication: PRODUCT USED FOR UNKNOWN INDICATION
     Route: 065
  2. ADALAT CC [Suspect]
     Active Substance: NIFEDIPINE
     Indication: PRODUCT USED FOR UNKNOWN INDICATION
     Dosage: DISCONTINUED 23 DAYS AGO.
     Route: 065
     Dates: end: 201801
  3. TEVA CLONIDINE [Suspect]
     Active Substance: CLONIDINE
     Indication: HYPERTENSION
     Dosage: 0.05 MG IN MORNING AND IN AFTERNOON AS NEEDED.  HALF OF A 0.1MG TABLET FOR 13 DAYS.
     Route: 048
     Dates: start: 201801

REACTIONS (6)
  - Loss of consciousness [Recovered/Resolved]
  - Blood pressure diastolic increased [Recovered/Resolved]
  - Drug interaction [Unknown]
  - Visual impairment [Unknown]
  - Hypersensitivity [Unknown]
  - Rash [Unknown]

NARRATIVE: CASE EVENT DATE: 2018
